FAERS Safety Report 9004489 (Version 1)
Quarter: 2013Q1

REPORT INFORMATION
  Report Type: Spontaneous
  Country: US (occurrence: None)
  Receive Date: 20130103
  Receipt Date: 20130103
  Transmission Date: 20140127
  Serious: Yes (Other)
  Sender: FDA-Public Use
  Company Number: None

PATIENT
  Age: 74 Year
  Sex: Female
  Weight: 97 kg

DRUGS (1)
  1. PACLITAXEL [Suspect]

REACTIONS (5)
  - Dyspnoea [None]
  - Chest discomfort [None]
  - Back pain [None]
  - Flushing [None]
  - Infusion related reaction [None]
